FAERS Safety Report 17689708 (Version 1)
Quarter: 2020Q2

REPORT INFORMATION
  Report Type: Spontaneous
  Country: US (occurrence: US)
  Receive Date: 20200421
  Receipt Date: 20200421
  Transmission Date: 20200714
  Serious: Yes (Hospitalization)
  Sender: FDA-Public Use
  Company Number: None

PATIENT
  Age: 50 Year
  Sex: Female

DRUGS (9)
  1. BET/APAP/CAF [Concomitant]
  2. ACYCLOVIR. [Concomitant]
     Active Substance: ACYCLOVIR
  3. MULTIPLE VITE [Concomitant]
  4. GLATIRAMER [Suspect]
     Active Substance: GLATIRAMER
     Indication: MULTIPLE SCLEROSIS
     Dosage: ?          OTHER FREQUENCY:THREE TIMES A WEEK;?
     Route: 058
     Dates: start: 20200111
  5. NEXIUM [Concomitant]
     Active Substance: ESOMEPRAZOLE MAGNESIUM
  6. TOPIRAMARE [Concomitant]
  7. NORTRIPTYLIN [Concomitant]
     Active Substance: NORTRIPTYLINE
  8. MODAFINIL. [Concomitant]
     Active Substance: MODAFINIL
  9. STOOL SOFTNER [Concomitant]

REACTIONS (1)
  - Investigation [None]

NARRATIVE: CASE EVENT DATE: 20200309
